FAERS Safety Report 13287649 (Version 2)
Quarter: 2017Q2

REPORT INFORMATION
  Report Type: Spontaneous
  Country: US (occurrence: US)
  Receive Date: 20170302
  Receipt Date: 20170616
  Transmission Date: 20170830
  Serious: Yes (Hospitalization)
  Sender: FDA-Public Use
  Company Number: US-009507513-1702USA012339

PATIENT
  Sex: Female

DRUGS (4)
  1. TOUJEO [Suspect]
     Active Substance: INSULIN GLARGINE
  2. METFORMIN [Suspect]
     Active Substance: METFORMIN HYDROCHLORIDE
  3. JANUVIA [Suspect]
     Active Substance: SITAGLIPTIN PHOSPHATE
     Route: 048
  4. GLIMEPIRIDE. [Suspect]
     Active Substance: GLIMEPIRIDE

REACTIONS (6)
  - Glycosylated haemoglobin increased [Not Recovered/Not Resolved]
  - Medication error [Not Recovered/Not Resolved]
  - Malaise [Not Recovered/Not Resolved]
  - Fatigue [Not Recovered/Not Resolved]
  - Hernia [Not Recovered/Not Resolved]
  - Blood glucose decreased [Not Recovered/Not Resolved]
